FAERS Safety Report 7171290-X (Version None)
Quarter: 2010Q4

REPORT INFORMATION
  Report Type: 
  Country: None (occurrence: None)
  Receive Date: 20101217
  Receipt Date: 20101207
  Transmission Date: 20110411
  Serious: Yes (Other)
  Sender: FDA-Public Use
  Company Number: US-ABBOTT-10P-163-0690266-00

PATIENT
  Age: 39 Year
  Sex: Female

DRUGS (18)
  1. HUMIRA [Suspect]
     Indication: CROHN'S DISEASE
     Dates: start: 20080901, end: 20090501
  2. HUMIRA [Suspect]
     Dates: start: 20101207
  3. ADVAIR [Concomitant]
     Indication: PRODUCT USED FOR UNKNOWN INDICATION
  4. ALPRAZOLAM [Concomitant]
     Indication: PRODUCT USED FOR UNKNOWN INDICATION
     Route: 048
  5. TEGRETOL [Concomitant]
     Indication: PRODUCT USED FOR UNKNOWN INDICATION
     Route: 048
  6. IRON [Concomitant]
     Indication: PRODUCT USED FOR UNKNOWN INDICATION
  7. FOLIC ACID [Concomitant]
     Indication: PRODUCT USED FOR UNKNOWN INDICATION
  8. LEVOTHYROXINE [Concomitant]
     Indication: PRODUCT USED FOR UNKNOWN INDICATION
  9. PENTASA [Concomitant]
     Indication: PRODUCT USED FOR UNKNOWN INDICATION
  10. PRISTIQ [Concomitant]
     Indication: PRODUCT USED FOR UNKNOWN INDICATION
  11. SINGULAIR [Concomitant]
     Indication: PRODUCT USED FOR UNKNOWN INDICATION
  12. TEMAZEPAM [Concomitant]
     Indication: PRODUCT USED FOR UNKNOWN INDICATION
  13. WELCHOL [Concomitant]
     Indication: PRODUCT USED FOR UNKNOWN INDICATION
  14. MULTI-VITAMIN [Concomitant]
     Indication: PRODUCT USED FOR UNKNOWN INDICATION
  15. ALLERGY INJECTIONS [Concomitant]
     Indication: PRODUCT USED FOR UNKNOWN INDICATION
  16. BENTYL [Concomitant]
     Indication: PRODUCT USED FOR UNKNOWN INDICATION
  17. ZOFRAN [Concomitant]
     Indication: PRODUCT USED FOR UNKNOWN INDICATION
  18. PERCOCET [Concomitant]
     Indication: PRODUCT USED FOR UNKNOWN INDICATION

REACTIONS (8)
  - CHOLECYSTECTOMY [None]
  - CUBITAL TUNNEL SYNDROME [None]
  - HYSTERECTOMY [None]
  - INJECTION SITE ERYTHEMA [None]
  - INJECTION SITE INFLAMMATION [None]
  - INJECTION SITE PRURITUS [None]
  - INJECTION SITE WARMTH [None]
  - SINUS OPERATION [None]
